FAERS Safety Report 21284442 (Version 1)
Quarter: 2022Q3

REPORT INFORMATION
  Report Type: Report from Study
  Country: BR (occurrence: BR)
  Receive Date: 20220902
  Receipt Date: 20220902
  Transmission Date: 20221027
  Serious: Yes (Hospitalization, Other)
  Sender: FDA-Public Use
  Company Number: BR-JNJFOC-20220856488

PATIENT
  Age: 79 Year
  Sex: Female
  Weight: 64 kg

DRUGS (3)
  1. SIMPONI [Suspect]
     Active Substance: GOLIMUMAB
     Indication: Rheumatoid arthritis
     Route: 058
     Dates: start: 20151116
  2. SIMPONI [Suspect]
     Active Substance: GOLIMUMAB
  3. INVESTIGATIONAL PRODUCT [Concomitant]
     Active Substance: INVESTIGATIONAL PRODUCT
     Indication: COVID-19 prophylaxis
     Dosage: 2 DOSES
     Route: 065

REACTIONS (4)
  - COVID-19 [Unknown]
  - Rheumatoid arthritis [Unknown]
  - Spinal pain [Unknown]
  - Adverse event [Unknown]
